FAERS Safety Report 6274928-4 (Version None)
Quarter: 2009Q3

REPORT INFORMATION
  Report Type: 
  Country: None (occurrence: None)
  Receive Date: 20090717
  Receipt Date: 20090701
  Transmission Date: 20100115
  Serious: Yes (Other)
  Sender: FDA-Public Use
  Company Number: 321393

PATIENT
  Age: 56 Year
  Sex: Female
  Weight: 67.7 kg

DRUGS (3)
  1. CARBOPLATIN [Suspect]
     Dosage: 172 MG, INTRAVENOUS
     Route: 042
     Dates: start: 20090611, end: 20090611
  2. FRAGMIN [Concomitant]
  3. PACLITAXEL [Concomitant]

REACTIONS (3)
  - PARAESTHESIA [None]
  - PARAESTHESIA ORAL [None]
  - RASH [None]
